FAERS Safety Report 5856903-4 (Version None)
Quarter: 2008Q3

REPORT INFORMATION
  Report Type: 
  Country: None (occurrence: None)
  Receive Date: 20080825
  Receipt Date: 20080811
  Transmission Date: 20090109
  Serious: Yes (Death, Hospitalization)
  Sender: FDA-Public Use
  Company Number: GB-BAUSCH-2008BL003524

PATIENT
  Age: 24 Year
  Sex: Female

DRUGS (5)
  1. PREDNISOLONE [Suspect]
     Indication: LUNG TRANSPLANT
  2. AZATHIOPRINE [Suspect]
     Indication: LUNG TRANSPLANT
     Route: 048
  3. NEORAL [Suspect]
     Indication: LUNG TRANSPLANT
     Route: 048
  4. AMPHOTERICIN B [Concomitant]
     Route: 031
  5. ITRACONAZOLE [Concomitant]
     Route: 048

REACTIONS (8)
  - ASPERGILLOSIS [None]
  - CARDIAC VALVE VEGETATION [None]
  - ENDOPHTHALMITIS [None]
  - FUNGAL ENDOCARDITIS [None]
  - FUNGAL SEPSIS [None]
  - INTESTINAL INFARCTION [None]
  - MITRAL VALVE INCOMPETENCE [None]
  - SEPTIC EMBOLUS [None]
